FAERS Safety Report 11230818 (Version 1)
Quarter: 2015Q2

REPORT INFORMATION
  Report Type: Spontaneous
  Country: US (occurrence: None)
  Receive Date: 20150629
  Receipt Date: 20150629
  Transmission Date: 20150821
  Serious: No
  Sender: FDA-Public Use
  Company Number: None

PATIENT
  Age: 56 Year
  Sex: Female
  Weight: 74.84 kg

DRUGS (6)
  1. SULFAZINE [Suspect]
     Active Substance: SULFASALAZINE
     Indication: CROHN^S DISEASE
     Dosage: 6 PILL TWICE A DAY   TWICE DAILY  TAKEN BY MOUTH
     Route: 048
  2. NORVASC [Concomitant]
     Active Substance: AMLODIPINE BESYLATE
  3. CLONIDINE. [Concomitant]
     Active Substance: CLONIDINE
  4. CHILDRENS BENADRYL ALLERGY [Concomitant]
     Active Substance: DIPHENHYDRAMINE HYDROCHLORIDE
  5. SPRIOLADACTONE [Concomitant]
  6. REMICADE [Concomitant]
     Active Substance: INFLIXIMAB

REACTIONS (3)
  - Product substitution issue [None]
  - Product formulation issue [None]
  - Nausea [None]
